FAERS Safety Report 17944532 (Version 1)
Quarter: 2020Q2

REPORT INFORMATION
  Report Type: Spontaneous
  Country: CH (occurrence: CH)
  Receive Date: 20200625
  Receipt Date: 20200625
  Transmission Date: 20200714
  Serious: Yes (Other)
  Sender: FDA-Public Use
  Company Number: CH-PFIZER INC-2020242973

PATIENT
  Age: 75 Year
  Sex: Male

DRUGS (12)
  1. VIDAZA [Suspect]
     Active Substance: AZACITIDINE
     Indication: ACUTE MYELOID LEUKAEMIA
     Dosage: 191 MG, DAILY, 1 CYCLE
     Route: 058
     Dates: start: 20200416, end: 20200420
  2. ATORVASTATIN PFIZER [Concomitant]
     Active Substance: ATORVASTATIN
     Dosage: 40 MG, DAILY
     Route: 048
  3. NOPIL [Concomitant]
     Active Substance: SULFAMETHOXAZOLE\TRIMETHOPRIM
     Dosage: 800 MG, EVERY 3 WEEKS
     Route: 048
  4. VITAMIN B12 AMINO [Concomitant]
     Dosage: 1000 UG, MONTHLY
     Route: 058
  5. VALTREX [Concomitant]
     Active Substance: VALACYCLOVIR HYDROCHLORIDE
     Dosage: 500 MG, DAILY
     Route: 048
  6. TAVANIC [Suspect]
     Active Substance: LEVOFLOXACIN
     Dosage: 500 MG, DAILY
     Route: 048
     Dates: start: 20200416, end: 20200417
  7. VIDAZA [Suspect]
     Active Substance: AZACITIDINE
     Dosage: 191 MG, DAILY, 2 CYCLE
     Route: 058
     Dates: start: 20200511, end: 20200515
  8. CLOPIDOGREL STREULI [Concomitant]
     Dosage: 75 MG, DAILY
     Route: 048
     Dates: end: 20200416
  9. CO-EPRIL [Concomitant]
     Active Substance: ENALAPRIL MALEATE\HYDROCHLOROTHIAZIDE
     Dosage: 10 MG, DAILY
     Route: 048
     Dates: end: 20200416
  10. TAZOBAC [Suspect]
     Active Substance: PIPERACILLIN SODIUM\TAZOBACTAM SODIUM
     Dosage: 4.5 G, 3X/DAY
     Route: 042
     Dates: start: 20200417, end: 20200427
  11. JAKAVI [Suspect]
     Active Substance: RUXOLITINIB
     Dosage: 15 MG, 2X/DAY
     Route: 048
     Dates: start: 201903, end: 20200409
  12. DIFLUCAN [Concomitant]
     Active Substance: FLUCONAZOLE
     Dosage: 200 MG, WEEKLY
     Route: 048

REACTIONS (1)
  - Oesophagitis ulcerative [Recovering/Resolving]

NARRATIVE: CASE EVENT DATE: 20200421
